FAERS Safety Report 5619484-6 (Version None)
Quarter: 2008Q1

REPORT INFORMATION
  Report Type: 
  Country: None (occurrence: None)
  Receive Date: 20080114
  Receipt Date: 20070720
  Transmission Date: 20080703
  Serious: Yes (Other)
  Sender: FDA-Public Use
  Company Number: FEI2007-1256

PATIENT
  Age: 40 Year
  Sex: Female
  Weight: 64.8644 kg

DRUGS (1)
  1. PARAGARD T 380A [Suspect]
     Indication: CONTRACEPTION
     Dosage: INTRA-UTERINE
     Route: 015
     Dates: start: 20040407

REACTIONS (3)
  - ECTOPIC PREGNANCY [None]
  - METRORRHAGIA [None]
  - VAGINAL HAEMORRHAGE [None]
